FAERS Safety Report 9688211 (Version 4)
Quarter: 2014Q1

REPORT INFORMATION
  Report Type: Spontaneous
  Country: US (occurrence: US)
  Receive Date: 20131114
  Receipt Date: 20140210
  Transmission Date: 20141002
  Serious: No
  Sender: FDA-Public Use
  Company Number: US-PFIZER INC-2013323484

PATIENT
  Sex: Male

DRUGS (2)
  1. LYRICA [Suspect]
     Dosage: 200 MG, 2X/DAY
     Route: 048
  2. NORCO [Concomitant]
     Dosage: 325/7.5 MG, AS NEEDED

REACTIONS (4)
  - Fatigue [Recovered/Resolved]
  - Somnolence [Recovered/Resolved]
  - Dysstasia [Recovered/Resolved]
  - Product quality issue [Unknown]
